FAERS Safety Report 10973838 (Version 1)
Quarter: 2015Q2

REPORT INFORMATION
  Report Type: Spontaneous
  Country: CA (occurrence: CA)
  Receive Date: 20150401
  Receipt Date: 20150401
  Transmission Date: 20150821
  Serious: Yes (Hospitalization, Disabling)
  Sender: FDA-Public Use
  Company Number: CA-JNJFOC-20150318736

PATIENT
  Sex: Male

DRUGS (1)
  1. XARELTO [Suspect]
     Active Substance: RIVAROXABAN
     Indication: THROMBOSIS PROPHYLAXIS
     Route: 048
     Dates: start: 2013

REACTIONS (15)
  - Anhedonia [Unknown]
  - Rectal haemorrhage [Unknown]
  - Carotid artery occlusion [Unknown]
  - Neurologic neglect syndrome [Unknown]
  - Mental impairment [Unknown]
  - Anxiety [Unknown]
  - Partner stress [Unknown]
  - Pain [Unknown]
  - Seizure [Unknown]
  - Fear [Unknown]
  - Coma [Unknown]
  - Haemorrhagic stroke [Unknown]
  - Bed rest [Unknown]
  - Quality of life decreased [Unknown]
  - Emotional distress [Unknown]

NARRATIVE: CASE EVENT DATE: 201306
